FAERS Safety Report 4552266-5 (Version None)
Quarter: 2004Q4

REPORT INFORMATION
  Report Type: 
  Country: None (occurrence: None)
  Receive Date: 20041217
  Receipt Date: 20040802
  Transmission Date: 20050328
  Serious: No
  Sender: FDA-Public Use
  Company Number: 2004-BP-06458BP

PATIENT
  Age: 81 Year
  Sex: Male

DRUGS (11)
  1. SPIRIVA [Suspect]
     Indication: CHRONIC OBSTRUCTIVE AIRWAYS DISEASE
     Dosage: 18 MCG (18 MCG), IH
     Route: 055
     Dates: start: 20040724
  2. XOPENEX [Concomitant]
  3. ALBUTEROL [Concomitant]
  4. OXYGEN (OXYGEN) [Concomitant]
  5. ADVAIR (SERETIDE MITE) [Concomitant]
  6. DIGOXIN [Concomitant]
  7. UNIPHY (THEOPHYLLINE) [Concomitant]
  8. PRILOSEC [Concomitant]
  9. NORVASC [Concomitant]
  10. HYTRIN [Concomitant]
  11. IPRATROPIUM BROMIDE [Concomitant]

REACTIONS (4)
  - BLOOD PRESSURE INCREASED [None]
  - HEADACHE [None]
  - HEART RATE INCREASED [None]
  - NAUSEA [None]
